FAERS Safety Report 6811943-3 (Version None)
Quarter: 2010Q3

REPORT INFORMATION
  Report Type: 
  Country: None (occurrence: None)
  Receive Date: 20100701
  Receipt Date: 20100628
  Transmission Date: 20110219
  Serious: Yes (Other)
  Sender: FDA-Public Use
  Company Number: US-BAYER-US-2004-034173

PATIENT
  Age: 41 Year
  Sex: Female

DRUGS (6)
  1. BETASERON [Suspect]
     Indication: RELAPSING-REMITTING MULTIPLE SCLEROSIS
     Dosage: TOTAL DAILY DOSE: 8 MIU
     Route: 058
     Dates: start: 20020227, end: 20040521
  2. BETASERON [Suspect]
     Dosage: TOTAL DAILY DOSE: 8 MIU
     Route: 058
     Dates: start: 20060627
  3. DITROPAN [Concomitant]
     Dosage: UNK, UNK
  4. DURADRIN [Concomitant]
     Dosage: UNK, UNK
  5. AMITRIPTYLINE [Concomitant]
     Dosage: UNK, UNK
  6. MACRODANTIN [Concomitant]
     Dosage: UNK, UNK

REACTIONS (5)
  - DIARRHOEA [None]
  - DIARRHOEA HAEMORRHAGIC [None]
  - ERYTHEMA [None]
  - OEDEMA PERIPHERAL [None]
  - RETINAL HAEMORRHAGE [None]
